FAERS Safety Report 5177111-9 (Version None)
Quarter: 2006Q4

REPORT INFORMATION
  Report Type: 
  Country: None (occurrence: None)
  Receive Date: 20061207
  Receipt Date: 20061127
  Transmission Date: 20070319
  Serious: Yes (Other)
  Sender: FDA-Public Use
  Company Number: 2006146977

PATIENT
  Age: 59 Year
  Sex: Female

DRUGS (2)
  1. CLINDAMYCIN PHOSPHATE [Suspect]
     Indication: RESPIRATORY TRACT INFECTION
     Dosage: INTRAVENOUS
     Route: 042
     Dates: start: 20061127, end: 20061127
  2. SOLITA-T 3G                 (CARBOHYDRATES NOS, POTASSIUM CHLORIDE, SO [Concomitant]

REACTIONS (3)
  - DYSPNOEA [None]
  - DYSSTASIA [None]
  - SHOCK [None]
